FAERS Safety Report 8923226 (Version 4)
Quarter: 2013Q4

REPORT INFORMATION
  Report Type: Report from Study
  Country: DE (occurrence: DE)
  Receive Date: 20121123
  Receipt Date: 20131220
  Transmission Date: 20140711
  Serious: Yes (Hospitalization, Other)
  Sender: FDA-Public Use
  Company Number: DE-ROCHE-1159355

PATIENT
  Age: 47 Year
  Sex: Female

DRUGS (4)
  1. ZELBORAF [Suspect]
     Indication: METASTATIC MALIGNANT MELANOMA
     Route: 048
     Dates: start: 20120327
  2. PANTOPRAZOLE [Concomitant]
     Route: 048
  3. TEVANATE [Concomitant]
     Route: 065
  4. NOVAMINSULFON [Concomitant]
     Route: 065

REACTIONS (1)
  - Radiation pneumonitis [Recovered/Resolved]
